FAERS Safety Report 8259163-2 (Version None)
Quarter: 2012Q2

REPORT INFORMATION
  Report Type: 
  Country: None (occurrence: None)
  Receive Date: 20120404
  Receipt Date: 20120330
  Transmission Date: 20120825
  Serious: Yes (Other)
  Sender: FDA-Public Use
  Company Number: PHHY2012US028118

PATIENT
  Age: 75 Year
  Sex: Female

DRUGS (1)
  1. BUFFERIN [Suspect]
     Indication: HEADACHE
     Dosage: 325 MG, UNK
     Route: 048

REACTIONS (2)
  - ARTHRITIS [None]
  - INCORRECT DRUG ADMINISTRATION DURATION [None]
